FAERS Safety Report 7607663-8 (Version None)
Quarter: 2011Q3

REPORT INFORMATION
  Report Type: 
  Country: None (occurrence: None)
  Receive Date: 20110713
  Receipt Date: 20110511
  Transmission Date: 20111222
  Serious: Yes (Other)
  Sender: FDA-Public Use
  Company Number: PHHY2011TW31716

PATIENT
  Sex: Female

DRUGS (5)
  1. THYROID THERAPY [Concomitant]
  2. ANTIHYPERTENSIVES [Concomitant]
  3. DIURETICS [Concomitant]
  4. ZOLEDRONOC ACID [Suspect]
     Indication: OSTEOPOROSIS
     Dosage: 5 MG/ 100ML, YEARLY
     Route: 042
     Dates: start: 20110301
  5. ANALGESICS [Concomitant]

REACTIONS (2)
  - BREAST CANCER [None]
  - RENAL IMPAIRMENT [None]
